FAERS Safety Report 14233440 (Version 1)
Quarter: 2017Q4

REPORT INFORMATION
  Report Type: Other
  Country: US (occurrence: US)
  Receive Date: 20171128
  Receipt Date: 20171128
  Transmission Date: 20180321
  Serious: No
  Sender: FDA-Public Use
  Company Number: US-MORTON GROVE PHARMACEUTICALS, INC.-2036192

PATIENT
  Age: 73 Year
  Sex: Female

DRUGS (2)
  1. LEVETIRACETAM. [Concomitant]
     Active Substance: LEVETIRACETAM
  2. VALPROIC ACID. [Suspect]
     Active Substance: VALPROIC ACID
     Indication: CONVULSION PROPHYLAXIS

REACTIONS (1)
  - Acute generalised exanthematous pustulosis [Recovered/Resolved]
